FAERS Safety Report 7422877-8 (Version None)
Quarter: 2011Q2

REPORT INFORMATION
  Report Type: 
  Country: None (occurrence: None)
  Receive Date: 20110419
  Receipt Date: 20110413
  Transmission Date: 20111010
  Serious: Yes (Other)
  Sender: FDA-Public Use
  Company Number: BR-PFIZER INC-2011081466

PATIENT
  Age: 63 Year
  Sex: Female
  Weight: 84 kg

DRUGS (4)
  1. FRESH TEARS [Concomitant]
     Indication: PRURITUS
     Dosage: UNK
  2. TENORETIC [Concomitant]
     Indication: HYPERTENSION
     Dosage: UNK
     Dates: start: 20090601
  3. FRESH TEARS [Concomitant]
     Indication: EYE IRRITATION
  4. XALATAN [Suspect]
     Indication: GLAUCOMA
     Dosage: 3 UG, 1X/DAY
     Route: 047
     Dates: start: 20090614

REACTIONS (5)
  - VISUAL FIELD DEFECT [None]
  - ERYTHEMA [None]
  - HYPERSENSITIVITY [None]
  - OCULAR HYPERAEMIA [None]
  - VISUAL IMPAIRMENT [None]
